FAERS Safety Report 23508515 (Version 3)
Quarter: 2024Q3

REPORT INFORMATION
  Report Type: Spontaneous
  Country: US (occurrence: US)
  Receive Date: 20240209
  Receipt Date: 20240722
  Transmission Date: 20241016
  Serious: No
  Sender: CALLIDITAS THERAPEUTICS
  Company Number: US-Calliditas-2024CAL00172

PATIENT
  Age: 66 Year
  Sex: Male

DRUGS (1)
  1. TARPEYO [Suspect]
     Active Substance: BUDESONIDE
     Indication: IgA nephropathy
     Route: 048
     Dates: start: 20240103

REACTIONS (4)
  - Diarrhoea [Unknown]
  - Flatulence [Unknown]
  - Tinnitus [Unknown]
  - Muscle spasms [Unknown]
